FAERS Safety Report 8974083 (Version 1)
Quarter: 2012Q4

REPORT INFORMATION
  Report Type: Spontaneous
  Country: US (occurrence: None)
  Receive Date: 20121217
  Receipt Date: 20121217
  Transmission Date: 20130627
  Serious: Yes (Hospitalization)
  Sender: FDA-Public Use
  Company Number: None

PATIENT
  Age: 55 Year
  Sex: Female
  Weight: 60 kg

DRUGS (2)
  1. DAPSONE [Suspect]
     Indication: LUPUS SYNDROME
     Route: 048
     Dates: start: 20121122, end: 20121202
  2. DAPSONE [Suspect]
     Indication: RHEUMATOID ARTHRITIS
     Route: 048
     Dates: start: 20121122, end: 20121202

REACTIONS (6)
  - Dyspnoea [None]
  - Chest discomfort [None]
  - Dizziness [None]
  - Cyanosis [None]
  - Dizziness [None]
  - Wrong drug administered [None]
